FAERS Safety Report 5473218-7 (Version None)
Quarter: 2007Q4

REPORT INFORMATION
  Report Type: 
  Country: None (occurrence: None)
  Receive Date: 20071001
  Receipt Date: 20070911
  Transmission Date: 20080405
  Serious: Yes (Hospitalization)
  Sender: FDA-Public Use
  Company Number: FR-BAYER-200710542BFR

PATIENT
  Age: 16 Year
  Sex: Female

DRUGS (5)
  1. CIFLOX [Suspect]
     Indication: LUNG DISORDER
     Dosage: TOTAL DAILY DOSE: 1.5 G  UNIT DOSE: 750 MG
     Route: 048
     Dates: start: 20070801, end: 20070823
  2. COLIMYCINE [Suspect]
     Indication: LUNG DISORDER
     Dosage: TOTAL DAILY DOSE: 4 MIU  UNIT DOSE: 2 MIU
     Route: 055
     Dates: start: 20070801, end: 20070823
  3. MERONEM [Suspect]
     Indication: LUNG DISORDER
     Dosage: TOTAL DAILY DOSE: 5.4 G
     Route: 042
     Dates: start: 20070809, end: 20070823
  4. NEBCIN [Concomitant]
     Indication: LUNG DISORDER
     Dates: start: 20070801, end: 20070809
  5. FORTUM [Concomitant]
     Indication: LUNG DISORDER
     Dates: start: 20070801, end: 20070809

REACTIONS (1)
  - ARTHRALGIA [None]
